FAERS Safety Report 8315099-X (Version None)
Quarter: 2012Q1

REPORT INFORMATION
  Report Type: 
  Country: None (occurrence: None)
  Receive Date: 20120315
  Receipt Date: 20110427
  Transmission Date: 20120608
  Serious: Yes (Other)
  Sender: FDA-Public Use
  Company Number: PHHY2011US36936

PATIENT
  Age: 31 Year
  Sex: Female

DRUGS (5)
  1. LORAZEPAM [Concomitant]
  2. GILENYA [Suspect]
     Indication: MULTIPLE SCLEROSIS
     Dosage: 0.5 MG, QD, ORAL
     Route: 048
     Dates: start: 20110304
  3. CITALOPRAM HYDROBROMIDE [Concomitant]
  4. RITALIN [Concomitant]
  5. NECON (ETHINYLESTRADIOL, NORETHISTERONE) [Concomitant]

REACTIONS (1)
  - ECZEMA [None]
